FAERS Safety Report 9234272 (Version 1)
Quarter: 2013Q2

REPORT INFORMATION
  Report Type: Report from Study
  Country: US (occurrence: US)
  Receive Date: 20130416
  Receipt Date: 20130416
  Transmission Date: 20140414
  Serious: Yes (Death, Other)
  Sender: FDA-Public Use
  Company Number: US-ROCHE-695556

PATIENT
  Sex: 0

DRUGS (5)
  1. RITUXIMAB [Suspect]
     Indication: CHRONIC LYMPHOCYTIC LEUKAEMIA
     Dosage: ON DAYS 1,18, 15 AND 22 OF CYCLE 1 AND THEN ONCE EVERY 4 WEEKS DURING CYCLE 3-12
     Route: 042
  2. RITUXIMAB [Suspect]
     Indication: CHRONIC LYMPHOCYTIC LEUKAEMIA REFRACTORY
  3. LENALIDOMIDE [Suspect]
     Indication: CHRONIC LYMPHOCYTIC LEUKAEMIA
     Dosage: STARTING ON DAY 9 OF CYCLE 1 AND CONTINUED DAILY FOR  12 CYCLES
     Route: 048
  4. LENALIDOMIDE [Suspect]
     Indication: CHRONIC LYMPHOCYTIC LEUKAEMIA REFRACTORY
  5. ALLOPURINOL [Suspect]
     Indication: PROPHYLAXIS
     Dosage: FIRST 14 DAYS OF CYCLE ONE.
     Route: 065

REACTIONS (28)
  - Ischaemic stroke [Fatal]
  - Infective exacerbation of chronic obstructive airways disease [Fatal]
  - Thrombocytopenia [Unknown]
  - Renal failure [Unknown]
  - Anaemia [Unknown]
  - Neutropenia [Unknown]
  - Acute myocardial infarction [Unknown]
  - Tumour lysis syndrome [Unknown]
  - Infection [Unknown]
  - Fatigue [Unknown]
  - Arthralgia [Unknown]
  - Febrile neutropenia [Unknown]
  - Pneumonia [Unknown]
  - Urosepsis [Unknown]
  - Tumour flare [Unknown]
  - Lower respiratory tract infection [Unknown]
  - Myelodysplastic syndrome [Unknown]
  - Bronchitis [Unknown]
  - Urinary tract infection [Unknown]
  - Oral infection [Unknown]
  - Wound infection [Unknown]
  - Pyrexia [Unknown]
  - Abdominal pain [Unknown]
  - Venous thrombosis [Unknown]
  - Asthenia [Unknown]
  - Diarrhoea [Unknown]
  - Constipation [Unknown]
  - Hyperbilirubinaemia [Unknown]
